FAERS Safety Report 7517457-X (Version None)
Quarter: 2011Q2

REPORT INFORMATION
  Report Type: 
  Country: None (occurrence: None)
  Receive Date: 20110601
  Receipt Date: 20110531
  Transmission Date: 20111010
  Serious: Yes (Life-Threatening)
  Sender: FDA-Public Use
  Company Number: JP-B.I. PHARMACEUTICALS,INC./RIDGEFIELD-2011-BP-14282NB

PATIENT
  Age: 76 Year
  Sex: Female

DRUGS (4)
  1. BISOPROLOL FUMARATE [Suspect]
     Dosage: 5 MG
     Route: 048
     Dates: start: 20110519
  2. PRADAXA [Suspect]
     Indication: ATRIAL FIBRILLATION
     Dosage: 220 MG
     Route: 048
     Dates: start: 20110514, end: 20110519
  3. VERAPAMIL HCL [Suspect]
     Dosage: 40 MG
     Route: 048
     Dates: start: 20110519
  4. CANDESARTAN CILEXETIL [Suspect]
     Dosage: 8 MG
     Route: 048
     Dates: start: 20110519

REACTIONS (2)
  - BLOOD PRESSURE DECREASED [None]
  - BRADYCARDIA [None]
